FAERS Safety Report 25677984 (Version 3)
Quarter: 2025Q3

REPORT INFORMATION
  Report Type: Spontaneous
  Country: EU (occurrence: EU)
  Receive Date: 20250813
  Receipt Date: 20250915
  Transmission Date: 20251021
  Serious: Yes (Hospitalization, Other)
  Sender: MYLAN
  Company Number: EU-RICHTER-2025-GR-008704

PATIENT
  Age: 71 Year
  Sex: Female

DRUGS (4)
  1. DABIGATRAN [Suspect]
     Active Substance: DABIGATRAN
     Indication: Thrombosis prophylaxis
  2. DABIGATRAN [Suspect]
     Active Substance: DABIGATRAN
     Indication: Atrial fibrillation
     Route: 065
  3. DABIGATRAN [Suspect]
     Active Substance: DABIGATRAN
     Route: 065
  4. DABIGATRAN [Suspect]
     Active Substance: DABIGATRAN

REACTIONS (4)
  - Pulmonary embolism [Recovering/Resolving]
  - Arrhythmogenic right ventricular dysplasia [Not Recovered/Not Resolved]
  - Ventricular tachycardia [Recovered/Resolved]
  - Drug ineffective [Recovered/Resolved]
